FAERS Safety Report 14091191 (Version 1)
Quarter: 2017Q4

REPORT INFORMATION
  Report Type: Report from Study
  Country: None (occurrence: RO)
  Receive Date: 20171016
  Receipt Date: 20171016
  Transmission Date: 20180321
  Serious: Yes (Hospitalization)
  Sender: FDA-Public Use
  Company Number: RO-ABBVIE-17K-135-2130648-00

PATIENT
  Age: 67 Year
  Sex: Male

DRUGS (1)
  1. DUODOPA [Suspect]
     Active Substance: CARBIDOPA\LEVODOPA
     Indication: PARKINSON^S DISEASE
     Dosage: MD-3??CR-3.4??ED-2.3??24/24
     Route: 050
     Dates: start: 20120706

REACTIONS (2)
  - Delirium [Recovering/Resolving]
  - Mixed dementia [Not Recovered/Not Resolved]

NARRATIVE: CASE EVENT DATE: 201709
